FAERS Safety Report 11102481 (Version 1)
Quarter: 2015Q2

REPORT INFORMATION
  Report Type: Spontaneous
  Country: CO (occurrence: CO)
  Receive Date: 20150511
  Receipt Date: 20150511
  Transmission Date: 20150821
  Serious: Yes (Other)
  Sender: FDA-Public Use
  Company Number: CO-JNJFOC-20150423007

PATIENT
  Sex: Female
  Weight: 136 kg

DRUGS (1)
  1. STELARA [Suspect]
     Active Substance: USTEKINUMAB
     Indication: PSORIASIS
     Route: 058
     Dates: start: 20140626, end: 20141215

REACTIONS (2)
  - Hepatic infection [Not Recovered/Not Resolved]
  - Psoriasis [Unknown]
